FAERS Safety Report 24296592 (Version 1)
Quarter: 2024Q3

REPORT INFORMATION
  Report Type: Spontaneous
  Country: DK (occurrence: DK)
  Receive Date: 20240909
  Receipt Date: 20240909
  Transmission Date: 20241016
  Serious: Yes (Other)
  Sender: MERCK
  Company Number: None

PATIENT
  Age: 67 Year
  Sex: Female
  Weight: 95.6 kg

DRUGS (3)
  1. KEYTRUDA [Interacting]
     Active Substance: PEMBROLIZUMAB
     Indication: Breast cancer
     Dosage: 200 MG. UNKNOWN IF CUMULATIVE DOSE, OR PER SERIES.
     Route: 042
     Dates: start: 20240416
  2. EPIRUBICIN [Interacting]
     Active Substance: EPIRUBICIN
     Indication: Breast cancer
     Dosage: 185 MG. UNKNOWN IF DOSE IS CUMULATIVE OR PER SERIES.
     Route: 042
     Dates: start: 20240416, end: 20240626
  3. CYCLOPHOSPHAMIDE [Concomitant]
     Active Substance: CYCLOPHOSPHAMIDE
     Indication: Breast cancer
     Dosage: 1236 MG. UNKNOWN IF CUMULATIVE DOSE OR PER SERIES.
     Dates: start: 20240424, end: 20240626

REACTIONS (3)
  - Acute polyneuropathy [Not Recovered/Not Resolved]
  - Neuropathy peripheral [Not Recovered/Not Resolved]
  - Drug interaction [Unknown]

NARRATIVE: CASE EVENT DATE: 20240401
